FAERS Safety Report 10235526 (Version 1)
Quarter: 2014Q2

REPORT INFORMATION
  Report Type: Spontaneous
  Country: US (occurrence: US)
  Receive Date: 20140613
  Receipt Date: 20140613
  Transmission Date: 20141212
  Serious: No
  Sender: FDA-Public Use
  Company Number: US-PFIZER INC-2014160865

PATIENT
  Age: 78 Year
  Sex: Female
  Weight: 77.1 kg

DRUGS (6)
  1. LYRICA [Suspect]
     Indication: FIBROMYALGIA
     Dosage: 50 MG, 2X/DAY
     Route: 048
     Dates: end: 2014
  2. LYRICA [Suspect]
     Indication: ARTHRITIS
     Dosage: 75 MG, 3X/DAY
     Route: 048
     Dates: start: 2014
  3. LYRICA [Suspect]
     Indication: NEUROPATHY PERIPHERAL
  4. DIOVANE [Concomitant]
     Indication: HYPERTENSION
     Dosage: 80 MG, UNK
  5. HYDRODIURIL [Concomitant]
     Indication: HYPERTENSION
     Dosage: 12.5 MG, AS NEEDED
  6. HYDRODIURIL [Concomitant]
     Indication: SWELLING

REACTIONS (3)
  - Neuropathy peripheral [Unknown]
  - Musculoskeletal discomfort [Unknown]
  - Blood calcium increased [Unknown]
